FAERS Safety Report 5092358-8 (Version None)
Quarter: 2006Q3

REPORT INFORMATION
  Report Type: 
  Country: None (occurrence: None)
  Receive Date: 20060825
  Receipt Date: 20060807
  Transmission Date: 20061208
  Serious: Yes (Hospitalization, Other)
  Sender: FDA-Public Use
  Company Number: US200608002416

PATIENT
  Age: 21 Year
  Sex: Female
  Weight: 132.9 kg

DRUGS (1)
  1. ZYPREXA [Suspect]
     Dates: start: 19990101, end: 20000101

REACTIONS (10)
  - BLOOD TRIGLYCERIDES INCREASED [None]
  - CHOLELITHIASIS [None]
  - DIABETES MELLITUS [None]
  - DIABETIC KETOACIDOSIS [None]
  - HYPERTENSION [None]
  - KETONURIA [None]
  - METABOLIC DISORDER [None]
  - OBESITY [None]
  - PANCREATITIS [None]
  - THROMBOSIS [None]
